FAERS Safety Report 8890879 (Version 1)
Quarter: 2012Q4

REPORT INFORMATION
  Report Type: 
  Country: US (occurrence: US)
  Receive Date: 20121106
  Receipt Date: 20121106
  Transmission Date: 20130627
  Serious: Yes (Other)
  Sender: FDA-Public Use
  Company Number: CHPA2012US022763

PATIENT
  Age: 69 Year
  Sex: Female

DRUGS (3)
  1. MYOFLEX ANALGESIC CREME [Suspect]
     Indication: ARTHRITIS
     Dosage: a small dab as needed
     Route: 061
  2. DIOVAN [Concomitant]
     Indication: HYPERTENSION
  3. LITHIUM [Concomitant]
     Indication: BIPOLAR DISORDER

REACTIONS (1)
  - Hypothyroidism [Not Recovered/Not Resolved]
